FAERS Safety Report 21546985 (Version 2)
Quarter: 2022Q4

REPORT INFORMATION
  Report Type: Spontaneous
  Country: US (occurrence: US)
  Receive Date: 20221103
  Receipt Date: 20221122
  Transmission Date: 20230113
  Serious: No
  Sender: FDA-Public Use
  Company Number: US-AIMMUNE THERAPEUTICS, INC.-2022AIMT02680

PATIENT

DRUGS (4)
  1. PALFORZIA [Suspect]
     Active Substance: PEANUT
     Indication: Food allergy
     Dosage: IDE (0.5MG-6MG), ONCE
     Route: 048
     Dates: start: 20220408, end: 20220408
  2. PALFORZIA [Suspect]
     Active Substance: PEANUT
     Dosage: 80 MG, 1X/DAY
     Route: 048
     Dates: start: 202210
  3. PALFORZIA [Suspect]
     Active Substance: PEANUT
     Dosage: 80 MG, ONCE, LAST DOSE PRIOR TO EVENT
     Route: 048
     Dates: start: 2022, end: 2022
  4. PALFORZIA [Suspect]
     Active Substance: PEANUT
     Dosage: 40 MG, ONCE, DOSE DECREASED
     Route: 048
     Dates: start: 2022

REACTIONS (5)
  - Illness [Unknown]
  - Secretion discharge [Unknown]
  - Laryngitis [Unknown]
  - Rhinorrhoea [Unknown]
  - Cough [Unknown]

NARRATIVE: CASE EVENT DATE: 20220101
